FAERS Safety Report 25799942 (Version 1)
Quarter: 2025Q3

REPORT INFORMATION
  Report Type: Report from Study
  Country: US (occurrence: US)
  Receive Date: 20250914
  Receipt Date: 20250914
  Transmission Date: 20251021
  Serious: Yes (Hospitalization)
  Sender: ABBVIE
  Company Number: US-ABBVIE-6454285

PATIENT
  Age: 39 Year
  Sex: Female

DRUGS (1)
  1. SKYRIZI [Suspect]
     Active Substance: RISANKIZUMAB-RZAA
     Indication: Crohn^s disease
     Route: 042
     Dates: start: 20250215

REACTIONS (4)
  - Migraine [Recovering/Resolving]
  - SARS-CoV-2 test positive [Unknown]
  - Immunosuppression [Unknown]
  - Brain oedema [Unknown]

NARRATIVE: CASE EVENT DATE: 20250101
